FAERS Safety Report 19794848 (Version 2)
Quarter: 2023Q4

REPORT INFORMATION
  Report Type: Report from Study
  Country: CN (occurrence: CN)
  Receive Date: 20210907
  Receipt Date: 20231025
  Transmission Date: 20240110
  Serious: Yes (Hospitalization)
  Sender: FDA-Public Use
  Company Number: CN-JNJFOC-20210860454

PATIENT
  Age: 13 Year
  Sex: Male
  Weight: 53.6 kg

DRUGS (6)
  1. REMICADE [Suspect]
     Active Substance: INFLIXIMAB
     Indication: Crohn^s disease
     Dosage: FREQUENCY: ONCE
     Route: 041
     Dates: start: 20210322, end: 20210322
  2. REMICADE [Suspect]
     Active Substance: INFLIXIMAB
     Dosage: FREQUENCY: ONCE
     Route: 041
     Dates: start: 20210406, end: 20210406
  3. REMICADE [Suspect]
     Active Substance: INFLIXIMAB
     Dosage: FREQUENCY: ONCE
     Route: 041
     Dates: start: 20210506, end: 20210506
  4. REMICADE [Suspect]
     Active Substance: INFLIXIMAB
     Dosage: FREQUENCY: ONCE
     Route: 041
     Dates: start: 20210702, end: 20210702
  5. REMICADE [Suspect]
     Active Substance: INFLIXIMAB
     Dosage: FREQUENCY: ONCE
     Route: 041
     Dates: start: 20210810, end: 20210810
  6. ERGOCALCIFEROL [Concomitant]
     Active Substance: ERGOCALCIFEROL
     Indication: Vitamin D deficiency
     Dosage: 2 CAPSULES, QD, ORAL
     Route: 048

REACTIONS (1)
  - Anal abscess [Not Recovered/Not Resolved]

NARRATIVE: CASE EVENT DATE: 20210812
